FAERS Safety Report 18386661 (Version 7)
Quarter: 2021Q4

REPORT INFORMATION
  Report Type: Spontaneous
  Country: US (occurrence: US)
  Receive Date: 20201015
  Receipt Date: 20211209
  Transmission Date: 20220303
  Serious: Yes (Other)
  Sender: FDA-Public Use
  Company Number: US-PFIZER INC-2020397159

PATIENT
  Age: 90 Year
  Sex: Male
  Weight: 69.841 kg

DRUGS (5)
  1. DETROL LA [Suspect]
     Active Substance: TOLTERODINE TARTRATE
     Indication: Bladder disorder
     Dosage: 1 DF, DAILY (ONE CAPSULE BY MOUTH DAILY)
     Route: 048
  2. DETROL LA [Suspect]
     Active Substance: TOLTERODINE TARTRATE
     Dosage: 4 MG, 1X/DAY
  3. DETROL LA [Suspect]
     Active Substance: TOLTERODINE TARTRATE
     Dosage: 4 MG, 1X/DAY
  4. LAMOTRIGINE [Concomitant]
     Active Substance: LAMOTRIGINE
     Dosage: 100 MG
     Dates: start: 2017
  5. RAMIPRIL [Concomitant]
     Active Substance: RAMIPRIL
     Dosage: 2.5 MG
     Dates: start: 2016

REACTIONS (2)
  - Dementia [Unknown]
  - Hypoacusis [Unknown]
